FAERS Safety Report 6724416-3 (Version None)
Quarter: 2010Q2

REPORT INFORMATION
  Report Type: 
  Country: None (occurrence: None)
  Receive Date: 20100513
  Receipt Date: 20100506
  Transmission Date: 20101027
  Serious: Yes (Death, Life-Threatening)
  Sender: FDA-Public Use
  Company Number: DE-PFIZER INC-2010056869

PATIENT
  Age: 72 Year
  Sex: Female

DRUGS (19)
  1. NORVASC [Suspect]
     Indication: HYPERTENSION
     Dosage: 5 MG, 1X/DAY
     Route: 048
     Dates: start: 20080101, end: 20090301
  2. ONDANSETRON HCL [Suspect]
     Indication: PROPHYLAXIS OF NAUSEA AND VOMITING
     Dosage: 8 MG, UNK
     Route: 042
     Dates: start: 20090225, end: 20090225
  3. CERNEVIT-12 [Suspect]
     Indication: SUPPLEMENTATION THERAPY
     Dosage: 1 AMP
     Route: 042
     Dates: start: 20090101
  4. ACTRAPID [Suspect]
     Indication: DIABETES MELLITUS
     Dosage: 16 IU, 2X/DAY
     Route: 058
     Dates: start: 20080101, end: 20090302
  5. LANTUS [Suspect]
     Indication: DIABETES MELLITUS
     Dosage: 18 IU, 1X/DAY
     Route: 058
     Dates: start: 20080101
  6. METOHEXAL [Suspect]
     Indication: HYPERTENSION
     Dosage: 100 MG, DAILY
     Route: 048
     Dates: start: 20080101
  7. DELIX PLUS [Suspect]
     Indication: HYPERTENSION
     Dosage: 5/25 DAILY
     Route: 048
     Dates: start: 20080101
  8. AMPHOTERICIN B [Suspect]
     Indication: CANDIDIASIS
     Dosage: UNK
     Route: 061
     Dates: start: 20090209, end: 20090301
  9. AMPHOTERICIN B [Suspect]
     Dosage: UNK
     Route: 061
     Dates: start: 20090303, end: 20090306
  10. METOCLOPRAMIDE [Suspect]
     Indication: NAUSEA
     Dosage: DROPS
     Route: 048
     Dates: start: 20090223, end: 20090301
  11. DOCETAXEL [Suspect]
     Indication: BREAST CANCER
     Dosage: 203 MG, UNK
     Route: 042
     Dates: start: 20090225, end: 20090225
  12. DEXAMETHASONE [Suspect]
     Indication: BREAST CANCER
     Dosage: 8 MG, 4 MG, 4 MG
     Route: 048
     Dates: start: 20090225, end: 20090228
  13. CIPRO [Suspect]
     Indication: INFECTION PROPHYLAXIS
     Dosage: 500 MG, 1X/DAY
     Route: 048
     Dates: start: 20090301, end: 20090302
  14. NULYTELY [Suspect]
     Indication: CONSTIPATION
     Dosage: UNK
     Route: 048
     Dates: start: 20090302, end: 20090302
  15. NEUPOGEN [Suspect]
     Indication: NEUTROPENIA
     Dosage: 300 MG, 1X/DAY
     Route: 058
     Dates: start: 20090302, end: 20090303
  16. METOCLOPRAMIDE [Suspect]
     Dosage: UNK
     Route: 042
     Dates: start: 20090302, end: 20090304
  17. CLONT [Suspect]
     Indication: INFECTION PROPHYLAXIS
     Dosage: 500 MG, 3X/DAY
     Route: 042
     Dates: start: 20090304
  18. MERONEM [Suspect]
     Indication: INFECTION PROPHYLAXIS
     Dosage: 1 G, 3X/DAY
     Route: 042
     Dates: start: 20090304
  19. LACTULOSE [Suspect]
     Indication: CONSTIPATION
     Dosage: 10 ML, 1X/DAY
     Route: 048
     Dates: start: 20090306, end: 20090306

REACTIONS (1)
  - TOXIC EPIDERMAL NECROLYSIS [None]
